FAERS Safety Report 8829566 (Version 1)
Quarter: 2012Q4

REPORT INFORMATION
  Report Type: 
  Country: US (occurrence: US)
  Receive Date: 20121008
  Receipt Date: 20121008
  Transmission Date: 20130627
  Serious: No
  Sender: FDA-Public Use
  Company Number: US-TEVA-328133USA

PATIENT
  Sex: Male

DRUGS (1)
  1. QVAR [Suspect]

REACTIONS (4)
  - Pyrexia [Unknown]
  - Dark circles under eyes [Unknown]
  - Irritability [Unknown]
  - Drug ineffective [Unknown]
